FAERS Safety Report 5639935-0 (Version None)
Quarter: 2008Q1

REPORT INFORMATION
  Report Type: 
  Country: None (occurrence: None)
  Receive Date: 20080225
  Receipt Date: 20080225
  Transmission Date: 20080703
  Serious: Yes (Life-Threatening)
  Sender: FDA-Public Use
  Company Number: None

PATIENT
  Sex: Male
  Weight: 81.6475 kg

DRUGS (2)
  1. CYPHER DRUG ELUTING STENT DEVICE JOHNSON + JOHNSON [Suspect]
  2. PLAVIX [Suspect]
     Indication: STENT PLACEMENT

REACTIONS (1)
  - NO ADVERSE EVENT [None]
